FAERS Safety Report 4604822-3 (Version None)
Quarter: 2005Q2

REPORT INFORMATION
  Report Type: 
  Country: None (occurrence: None)
  Receive Date: 20050224
  Receipt Date: 20040423
  Transmission Date: 20051028
  Serious: No
  Sender: FDA-Public Use
  Company Number: 04P-163-0258914-00

PATIENT
  Sex: Male

DRUGS (4)
  1. DILAUDID [Suspect]
     Indication: PAIN MANAGEMENT
     Dosage: 2 MILLIGRAM/MILLILITERS, PCA MODE WITH 10 MIN LOCKOUT, INTRAVENOUS; SEE IMAGE
     Route: 042
     Dates: start: 20030818, end: 20030801
  2. DILAUDID [Suspect]
     Indication: PANCREATIC PSEUDOCYST
     Dosage: 2 MILLIGRAM/MILLILITERS, PCA MODE WITH 10 MIN LOCKOUT, INTRAVENOUS; SEE IMAGE
     Route: 042
     Dates: start: 20030818, end: 20030801
  3. DILAUDID [Suspect]
     Indication: PAIN MANAGEMENT
     Dosage: 2 MILLIGRAM/MILLILITERS, PCA MODE WITH 10 MIN LOCKOUT, INTRAVENOUS; SEE IMAGE
     Route: 042
     Dates: start: 20030818, end: 20030801
  4. DILAUDID [Suspect]
     Indication: PANCREATIC PSEUDOCYST
     Dosage: 2 MILLIGRAM/MILLILITERS, PCA MODE WITH 10 MIN LOCKOUT, INTRAVENOUS; SEE IMAGE
     Route: 042
     Dates: start: 20030818, end: 20030801

REACTIONS (3)
  - INAPPROPRIATE SCHEDULE OF DRUG ADMINISTRATION [None]
  - OVERDOSE [None]
  - SOMNOLENCE [None]
